FAERS Safety Report 8062795-8 (Version None)
Quarter: 2011Q4

REPORT INFORMATION
  Report Type: 
  Country: None (occurrence: None)
  Receive Date: 20111221
  Receipt Date: 20110608
  Transmission Date: 20120403
  Serious: Yes (Other)
  Sender: FDA-Public Use
  Company Number: PHHY2011US51402

PATIENT
  Age: 49 Year
  Sex: Male

DRUGS (1)
  1. EXJADE [Suspect]
     Indication: IRON METABOLISM DISORDER
     Dosage: 2250 MG, QD, ORAL
     Route: 048
     Dates: end: 20110509

REACTIONS (1)
  - LIVER INJURY [None]
